FAERS Safety Report 9012537 (Version 1)
Quarter: 2013Q1

REPORT INFORMATION
  Report Type: Spontaneous
  Country: FR (occurrence: FR)
  Receive Date: 20130114
  Receipt Date: 20130114
  Transmission Date: 20140127
  Serious: Yes (Life-Threatening)
  Sender: FDA-Public Use
  Company Number: FR-PFIZER INC-2013011946

PATIENT
  Age: 38 Year
  Sex: Male

DRUGS (4)
  1. SOLU-MEDROL [Suspect]
     Indication: VASCULITIS CEREBRAL
     Dosage: 1 G, 1X/DAY
     Route: 040
     Dates: start: 20120814, end: 20120816
  2. SEROPLEX [Concomitant]
     Indication: BURNOUT SYNDROME
  3. SERESTA [Concomitant]
     Indication: BURNOUT SYNDROME
  4. ASPEGIC [Concomitant]
     Indication: VASCULITIS CEREBRAL
     Dosage: 250 MG
     Route: 042

REACTIONS (2)
  - Ventricular fibrillation [Recovered/Resolved with Sequelae]
  - Cardiac arrest [Recovered/Resolved with Sequelae]
